FAERS Safety Report 4915391-2 (Version None)
Quarter: 2006Q1

REPORT INFORMATION
  Report Type: 
  Country: None (occurrence: None)
  Receive Date: 20060113
  Receipt Date: 20051005
  Transmission Date: 20060701
  Serious: No
  Sender: FDA-Public Use
  Company Number: 2005SP003351

PATIENT
  Age: 58 Year
  Sex: Female
  Weight: 72.5755 kg

DRUGS (10)
  1. LUNESTA [Suspect]
     Indication: INSOMNIA
     Dosage: 2 MG;HS;ORAL
     Route: 048
     Dates: start: 20051004, end: 20050101
  2. SEROQUEL [Concomitant]
  3. TOPAMAX [Concomitant]
  4. TRAZODONE HCL [Concomitant]
  5. CELEXA [Concomitant]
  6. LAMOTRIGINE [Concomitant]
  7. PROVIGIL [Concomitant]
  8. OMEPRAZOLE [Concomitant]
  9. TEGARSEROD MALEATE [Concomitant]
  10. DIAZIDE [Concomitant]

REACTIONS (7)
  - DIZZINESS [None]
  - DRUG INEFFECTIVE [None]
  - HEADACHE [None]
  - MIDDLE INSOMNIA [None]
  - PHARYNGEAL OEDEMA [None]
  - PRURITUS [None]
  - RASH [None]
